FAERS Safety Report 10766718 (Version 1)
Quarter: 2015Q1

REPORT INFORMATION
  Report Type: Report from Study
  Country: MX (occurrence: MX)
  Receive Date: 20150205
  Receipt Date: 20150205
  Transmission Date: 20150721
  Serious: Yes (Death, Hospitalization, Other)
  Sender: FDA-Public Use
  Company Number: PHHY2015MX013136

PATIENT
  Age: 52 Year
  Sex: Male

DRUGS (1)
  1. IMATINIB [Suspect]
     Active Substance: IMATINIB
     Indication: CHRONIC MYELOID LEUKAEMIA
     Dosage: UNK
     Route: 065
     Dates: start: 2012

REACTIONS (5)
  - Drug intolerance [Unknown]
  - Oncologic complication [Fatal]
  - Anaemia [Unknown]
  - Splenomegaly [Unknown]
  - Chronic myeloid leukaemia [None]

NARRATIVE: CASE EVENT DATE: 201410
